FAERS Safety Report 6870025-5 (Version None)
Quarter: 2010Q3

REPORT INFORMATION
  Report Type: 
  Country: None (occurrence: None)
  Receive Date: 20100722
  Receipt Date: 20100713
  Transmission Date: 20110219
  Serious: Yes (Death, Life-Threatening)
  Sender: FDA-Public Use
  Company Number: TW-PFIZER INC-2009159690

PATIENT
  Age: 60 Year
  Sex: Male
  Weight: 46.5 kg

DRUGS (35)
  1. LINEZOLID [Suspect]
     Indication: PNEUMONIA
     Dosage: 600 MG, 2X/DAY
     Route: 042
     Dates: start: 20081210, end: 20081223
  2. PARACETAMOL [Concomitant]
     Dates: start: 20090105, end: 20090114
  3. PARACETAMOL [Concomitant]
     Dates: start: 20090105, end: 20090114
  4. SOMA [Concomitant]
     Dates: start: 20090113, end: 20090114
  5. SOMA [Concomitant]
     Dates: start: 20090113, end: 20090114
  6. KAOPECTATE [Concomitant]
     Dates: start: 20090110, end: 20090114
  7. KAOPECTATE [Concomitant]
     Dates: start: 20090110, end: 20090114
  8. ANTIBIOPHILUS [Concomitant]
     Dates: start: 20090113, end: 20090114
  9. ANTIBIOPHILUS [Concomitant]
     Dates: start: 20090113, end: 20090114
  10. BIOFERMIN [Concomitant]
     Dates: start: 20090110, end: 20090114
  11. BIOFERMIN [Concomitant]
     Dates: start: 20090110, end: 20090114
  12. SILYMARIN [Concomitant]
     Dates: start: 20090107, end: 20090113
  13. SILYMARIN [Concomitant]
     Dates: start: 20090107, end: 20090113
  14. LOPERAMIDE [Concomitant]
     Dates: start: 20090111, end: 20090111
  15. LOPERAMIDE [Concomitant]
     Dates: start: 20090111, end: 20090111
  16. VENTOLIN [Concomitant]
     Dates: start: 20090111, end: 20090111
  17. VENTOLIN [Concomitant]
     Dates: start: 20090108, end: 20090108
  18. COMBIVENT [Concomitant]
     Dates: start: 20090110, end: 20090114
  19. COMBIVENT [Concomitant]
     Dates: start: 20090110, end: 20090114
  20. EPINEPHRINE [Concomitant]
     Dates: start: 20090110, end: 20090110
  21. EPINEPHRINE [Concomitant]
     Dates: start: 20090110, end: 20090110
  22. DEXAMETHASONE [Concomitant]
     Dates: start: 20090110, end: 20090110
  23. DEXAMETHASONE [Concomitant]
     Dates: start: 20090110, end: 20090110
  24. DIAZEPAM [Concomitant]
     Dates: start: 20090109, end: 20090110
  25. DIAZEPAM [Concomitant]
     Dates: start: 20090109, end: 20090110
  26. PROPOFOL [Concomitant]
     Dates: start: 20090109, end: 20090110
  27. PROPOFOL [Concomitant]
     Dates: start: 20090109, end: 20090110
  28. LORAZEPAM [Concomitant]
     Dates: start: 20090109, end: 20090110
  29. LORAZEPAM [Concomitant]
     Dates: start: 20090109, end: 20090110
  30. ALL OTHER THERAPEUTIC PRODUCTS [Concomitant]
     Dates: start: 20090108, end: 20090109
  31. ALL OTHER THERAPEUTIC PRODUCTS [Concomitant]
     Dates: start: 20090108, end: 20090109
  32. BROMHEXINE [Concomitant]
     Dates: start: 20090108, end: 20090114
  33. BROMHEXINE [Concomitant]
     Dates: start: 20090108, end: 20090114
  34. ALL OTHER THERAPEUTIC PRODUCTS [Concomitant]
     Dates: start: 20090103, end: 20090107
  35. ALL OTHER THERAPEUTIC PRODUCTS [Concomitant]
     Dates: start: 20090103, end: 20090107

REACTIONS (2)
  - PNEUMONIA [None]
  - SEPTIC SHOCK [None]
